FAERS Safety Report 17561423 (Version 1)
Quarter: 2020Q1

REPORT INFORMATION
  Report Type: Spontaneous
  Country: US (occurrence: US)
  Receive Date: 20200312
  Receipt Date: 20200312
  Transmission Date: 20200409
  Serious: Yes (Hospitalization)
  Sender: FDA-Public Use
  Company Number: None

PATIENT
  Age: 62 Year
  Sex: Female

DRUGS (27)
  1. MULTI-VITAMIN [Concomitant]
     Active Substance: .ALPHA.-TOCOPHEROL ACETATE, DL-\ASCORBIC ACID\CYANOCOBALAMIN\FLUORIDE ION\FOLIC ACID\NIACIN\PYRIDOXINE\RIBOFLAVIN\THIAMINE\VITAMIN A\VITAMIN D
  2. AMANADINE [Concomitant]
  3. VITAMIN B12 [Concomitant]
     Active Substance: CYANOCOBALAMIN
  4. COLACE [Concomitant]
     Active Substance: DOCUSATE SODIUM
  5. AXERT [Concomitant]
     Active Substance: ALMOTRIPTAN MALATE
  6. DALFAMPRIDINE ER [Suspect]
     Active Substance: DALFAMPRIDINE
     Indication: MULTIPLE SCLEROSIS
     Route: 048
     Dates: start: 20140220
  7. PANTOPRAZOLE [Concomitant]
     Active Substance: PANTOPRAZOLE
  8. VICODIN [Concomitant]
     Active Substance: ACETAMINOPHEN\HYDROCODONE BITARTRATE
  9. VITAMIN D3 [Concomitant]
     Active Substance: CHOLECALCIFEROL
  10. BACTRIM [Concomitant]
     Active Substance: SULFAMETHOXAZOLE\TRIMETHOPRIM
  11. VESICARE [Concomitant]
     Active Substance: SOLIFENACIN SUCCINATE
  12. BIOTIN [Concomitant]
     Active Substance: BIOTIN
  13. DIAZEPAM. [Concomitant]
     Active Substance: DIAZEPAM
  14. MIDODRINE [Concomitant]
     Active Substance: MIDODRINE
  15. TYSABRI [Concomitant]
     Active Substance: NATALIZUMAB
  16. AMBIEN [Concomitant]
     Active Substance: ZOLPIDEM TARTRATE
  17. BACLOFEN. [Concomitant]
     Active Substance: BACLOFEN
  18. PROBIOTIC [Concomitant]
     Active Substance: PROBIOTICS NOS
  19. CALCIUM [Concomitant]
     Active Substance: CALCIUM
  20. LYRICA [Concomitant]
     Active Substance: PREGABALIN
  21. PROTONIX [Concomitant]
     Active Substance: PANTOPRAZOLE SODIUM
  22. METHYPHENID [Concomitant]
  23. MECLIZINE [Concomitant]
     Active Substance: MECLIZINE HYDROCHLORIDE
  24. TIZANIDINE. [Concomitant]
     Active Substance: TIZANIDINE
  25. BYSTOLIC [Concomitant]
     Active Substance: NEBIVOLOL HYDROCHLORIDE
  26. CRANBERRY. [Concomitant]
     Active Substance: CRANBERRY
  27. SERTRALINE [Concomitant]
     Active Substance: SERTRALINE HYDROCHLORIDE

REACTIONS (1)
  - Condition aggravated [None]

NARRATIVE: CASE EVENT DATE: 20200304
